FAERS Safety Report 19808944 (Version 1)
Quarter: 2021Q3

REPORT INFORMATION
  Report Type: Spontaneous
  Country: US (occurrence: US)
  Receive Date: 20210903
  Receipt Date: 20210903
  Transmission Date: 20211014
  Serious: Yes (Hospitalization)
  Sender: FDA-Public Use
  Company Number: None

PATIENT
  Age: 81 Year
  Sex: Male

DRUGS (4)
  1. ABIRATERONE ACETATE 250 MG NOVADOZ PHARMACEUTICALS [Suspect]
     Active Substance: ABIRATERONE ACETATE
     Indication: PROSTATE CANCER
     Dosage: 250MG 4 TABS ONCE DAILY ORAL?TO ON HOLD
     Route: 048
     Dates: start: 20210805
  2. LUPRON DEPOT [Suspect]
     Active Substance: LEUPROLIDE ACETATE
     Indication: PROSTATE CANCER
     Dosage: OTHER FREQUENCY:EVERY 6 MONTHS;?TO ON HOLD
     Route: 030
     Dates: start: 20210428
  3. LUPRON DEPOT [Suspect]
     Active Substance: LEUPROLIDE ACETATE
     Indication: RECTAL CANCER
     Dosage: OTHER FREQUENCY:EVERY 6 MONTHS;?TO ON HOLD
     Route: 030
     Dates: start: 20210428
  4. ABIRATERONE ACETATE 250 MG NOVADOZ PHARMACEUTICALS [Suspect]
     Active Substance: ABIRATERONE ACETATE
     Indication: RECTAL CANCER
     Dosage: 250MG 4 TABS ONCE DAILY ORAL?TO ON HOLD
     Route: 048
     Dates: start: 20210805

REACTIONS (2)
  - Subdural haematoma [None]
  - Therapy interrupted [None]

NARRATIVE: CASE EVENT DATE: 20210807
